FAERS Safety Report 8061041-9 (Version None)
Quarter: 2012Q1

REPORT INFORMATION
  Report Type: 
  Country: None (occurrence: None)
  Receive Date: 20120120
  Receipt Date: 20110513
  Transmission Date: 20120608
  Serious: No
  Sender: FDA-Public Use
  Company Number: US-ALLERGAN-1106611US

PATIENT
  Age: 82 Year
  Sex: Female

DRUGS (1)
  1. RESTASIS [Suspect]
     Indication: EYE DISCHARGE
     Dosage: 2 GTT, BID
     Route: 047
     Dates: start: 20110510

REACTIONS (1)
  - EYE IRRITATION [None]
